FAERS Safety Report 5033631-9 (Version None)
Quarter: 2006Q2

REPORT INFORMATION
  Report Type: 
  Country: None (occurrence: None)
  Receive Date: 20060620
  Receipt Date: 20060607
  Transmission Date: 20061013
  Serious: Yes (Hospitalization)
  Sender: FDA-Public Use
  Company Number: CH200606002082

PATIENT
  Age: 52 Year
  Sex: Female

DRUGS (7)
  1. ZYPREXA [Suspect]
     Dosage: SEE IMAGE
     Route: 048
     Dates: start: 20051213
  2. ZYPREXA [Suspect]
     Dosage: SEE IMAGE
     Route: 048
     Dates: start: 20060402
  3. ZYPREXA [Suspect]
     Dosage: SEE IMAGE
     Route: 048
     Dates: start: 20060413
  4. ZYPREXA [Suspect]
     Dosage: SEE IMAGE
     Route: 048
     Dates: start: 20060419
  5. NEBIVOLOL HCL [Concomitant]
  6. LORAZEPAM [Concomitant]
  7. ZOLPIDEM TARTRATE [Concomitant]

REACTIONS (9)
  - AGITATION [None]
  - AKATHISIA [None]
  - ANXIETY [None]
  - DEPRESSION [None]
  - DRUG LEVEL DECREASED [None]
  - REFUSAL OF TREATMENT BY PATIENT [None]
  - RESTLESSNESS [None]
  - SLEEP DISORDER [None]
  - WEIGHT INCREASED [None]
